FAERS Safety Report 21896704 (Version 2)
Quarter: 2023Q1

REPORT INFORMATION
  Report Type: Report from Study
  Country: CA (occurrence: CA)
  Receive Date: 20230123
  Receipt Date: 20230203
  Transmission Date: 20230418
  Serious: Yes (Other)
  Sender: FDA-Public Use
  Company Number: CA-002147023-NVSC2022CA237213

PATIENT
  Sex: Female

DRUGS (2)
  1. AIMOVIG [Suspect]
     Active Substance: ERENUMAB-AOOE
     Indication: Migraine
     Dosage: UNK
     Route: 065
     Dates: start: 20220727
  2. AIMOVIG [Suspect]
     Active Substance: ERENUMAB-AOOE
     Dosage: UNK
     Route: 065
     Dates: start: 20220923

REACTIONS (14)
  - Pulmonary fibrosis [Unknown]
  - Respiratory tract infection viral [Unknown]
  - Nasopharyngitis [Unknown]
  - Respiratory tract congestion [Unknown]
  - Headache [Unknown]
  - Influenza like illness [Unknown]
  - Cough [Unknown]
  - Asthma [Unknown]
  - Nasal congestion [Recovered/Resolved]
  - Arthropod bite [Recovered/Resolved]
  - Rash [Recovered/Resolved]
  - Concussion [Unknown]
  - Accident [Unknown]
  - Migraine [Unknown]
